FAERS Safety Report 20790927 (Version 4)
Quarter: 2024Q1

REPORT INFORMATION
  Report Type: Spontaneous
  Country: CA (occurrence: CA)
  Receive Date: 20220505
  Receipt Date: 20240220
  Transmission Date: 20240410
  Serious: Yes (Other)
  Sender: FDA-Public Use
  Company Number: CA-HLS-202200886

PATIENT
  Sex: Female

DRUGS (160)
  1. RANITIDINE [Suspect]
     Active Substance: RANITIDINE
     Indication: Product used for unknown indication
     Dosage: 2 EVERY 1 DAYS
     Route: 065
  2. FLUMIST QUADRIVALENT [Suspect]
     Active Substance: INFLUENZA A VIRUS A/CALIFORNIA/7/2009 (H1N1) LIVE(ATTENUATED) ANTIGEN\INFLUENZA A VIRUS A/TEXAS/50/2
     Indication: Product used for unknown indication
     Dosage: NOT SPECIFIED DOSAGE FORM
     Route: 065
  3. REXULTI [Suspect]
     Active Substance: BREXPIPRAZOLE
     Indication: Product used for unknown indication
     Dosage: TABLETS DOSAGE FORM
     Route: 065
  4. DIVALPROEX SODIUM [Suspect]
     Active Substance: DIVALPROEX SODIUM
     Indication: Product used for unknown indication
     Dosage: 2 EVERY 1 DAYS?NOT SPECIFIED DOSAGE FORM
     Route: 065
  5. ACETAMINOPHEN [Suspect]
     Active Substance: ACETAMINOPHEN
     Indication: Pain
     Dosage: AMOUNT: 2 DOSAGE FORMS?NOT SPECIFIED DOSAGE FORM
     Route: 065
  6. ACETAMINOPHEN [Suspect]
     Active Substance: ACETAMINOPHEN
     Indication: Pyrexia
     Dosage: AMOUNT: 2 DOSAGE FORMS?NOT SPECIFIED DOSAGE FORM
     Route: 065
  7. ACETAMINOPHEN [Suspect]
     Active Substance: ACETAMINOPHEN
     Indication: Pain
     Dosage: NOT SPECIFIED DOSAGE FORM
     Route: 065
  8. ACETAMINOPHEN [Suspect]
     Active Substance: ACETAMINOPHEN
     Indication: Pyrexia
     Dosage: NOT SPECIFIED DOSAGE FORM
     Route: 065
  9. BREXPIPRAZOLE [Suspect]
     Active Substance: BREXPIPRAZOLE
     Indication: Rash
     Dosage: AMOUNT: 1 DOSAGE FORMS?NOT SPECIFIED DOSAGE FORM
     Route: 067
  10. BREXPIPRAZOLE [Suspect]
     Active Substance: BREXPIPRAZOLE
     Indication: Product used for unknown indication
     Dosage: AMOUNT: 1 DOSAGE FORMS?NOT SPECIFIED DOSAGE FORM
     Route: 067
  11. BREXPIPRAZOLE [Suspect]
     Active Substance: BREXPIPRAZOLE
     Indication: Rash
     Dosage: 1 EVERY 1 DAYS?AMOUNT: 1 DOSAGE FORMS
     Route: 065
  12. BREXPIPRAZOLE [Suspect]
     Active Substance: BREXPIPRAZOLE
     Indication: Product used for unknown indication
     Dosage: 1 EVERY 1 DAYS?AMOUNT: 1 DOSAGE FORMS
     Route: 065
  13. BREXPIPRAZOLE [Suspect]
     Active Substance: BREXPIPRAZOLE
     Indication: Rash
     Dosage: 1 EVERY 1 DAYS?AMOUNT: 3 DOSAGE FORMS
     Route: 065
  14. BREXPIPRAZOLE [Suspect]
     Active Substance: BREXPIPRAZOLE
     Indication: Product used for unknown indication
     Dosage: 1 EVERY 1 DAYS?AMOUNT: 3 DOSAGE FORMS
     Route: 065
  15. BREXPIPRAZOLE [Suspect]
     Active Substance: BREXPIPRAZOLE
     Indication: Rash
     Dosage: 2 EVERY 1 DAYS?AMOUNT: 1 DOSAGE FORMS?NOT SPECIFIED DOSAGE FORM
     Route: 065
  16. BREXPIPRAZOLE [Suspect]
     Active Substance: BREXPIPRAZOLE
     Indication: Product used for unknown indication
     Dosage: 2 EVERY 1 DAYS?AMOUNT: 1 DOSAGE FORMS?NOT SPECIFIED DOSAGE FORM
     Route: 065
  17. BREXPIPRAZOLE [Suspect]
     Active Substance: BREXPIPRAZOLE
     Indication: Rash
     Route: 065
  18. BREXPIPRAZOLE [Suspect]
     Active Substance: BREXPIPRAZOLE
     Indication: Product used for unknown indication
     Route: 065
  19. BREXPIPRAZOLE [Suspect]
     Active Substance: BREXPIPRAZOLE
     Indication: Rash
     Dosage: NOT SPECIFIED DOSAGE FORM
     Route: 065
  20. BREXPIPRAZOLE [Suspect]
     Active Substance: BREXPIPRAZOLE
     Indication: Product used for unknown indication
     Dosage: NOT SPECIFIED DOSAGE FORM
     Route: 065
  21. INFLUENZA VIRUS VACCINE [Suspect]
     Active Substance: INFLUENZA VIRUS VACCINE
     Indication: Product used for unknown indication
     Dosage: AMOUNT: 1 DOSAGE FORMS?NOT SPECIFIED DOSAGE FORM
     Route: 065
  22. INFLUENZA VIRUS VACCINE [Suspect]
     Active Substance: INFLUENZA VIRUS VACCINE
     Indication: Product used for unknown indication
     Dosage: 1 EVERY 1 DAYS?AMOUNT: 1 DOSAGE FORMS
     Route: 065
  23. INFLUENZA VIRUS VACCINE [Suspect]
     Active Substance: INFLUENZA VIRUS VACCINE
     Indication: Product used for unknown indication
     Dosage: 2 EVERY 1 DAYS?AMOUNT: 1 DOSAGE FORMS
     Route: 065
  24. INFLUENZA VIRUS VACCINE [Suspect]
     Active Substance: INFLUENZA VIRUS VACCINE
     Indication: Product used for unknown indication
     Route: 065
  25. INFLUENZA VIRUS VACCINE [Suspect]
     Active Substance: INFLUENZA VIRUS VACCINE
     Indication: Product used for unknown indication
     Route: 065
  26. RANITIDINE HYDROCHLORIDE [Suspect]
     Active Substance: RANITIDINE HYDROCHLORIDE
     Indication: Product used for unknown indication
     Dosage: 2 EVERY 1 DAYS?AMOUNT: 1 DOSAGE FORMS
     Route: 065
  27. RANITIDINE HYDROCHLORIDE [Suspect]
     Active Substance: RANITIDINE HYDROCHLORIDE
     Indication: Product used for unknown indication
     Dosage: TABLETS DOSAGE FORM
     Route: 065
  28. SIMETHICONE (DIMETHICONE) [Suspect]
     Active Substance: DIMETHICONE
     Indication: Abdominal discomfort
     Dosage: AMOUNT: 30 ML
     Route: 065
  29. SIMETHICONE (DIMETHICONE) [Suspect]
     Active Substance: DIMETHICONE
     Indication: Product used for unknown indication
     Dosage: AMOUNT: 30 ML
     Route: 065
  30. SIMETHICONE (DIMETHICONE) [Suspect]
     Active Substance: DIMETHICONE
     Indication: Abdominal discomfort
     Dosage: 2 EVERY 1 DAYS?AMOUNT: 1 DOSAGE FORMS?NOT SPECIFIED DOSAGE FORM
     Route: 065
  31. SIMETHICONE (DIMETHICONE) [Suspect]
     Active Substance: DIMETHICONE
     Indication: Product used for unknown indication
     Dosage: 2 EVERY 1 DAYS?AMOUNT: 1 DOSAGE FORMS?NOT SPECIFIED DOSAGE FORM
     Route: 065
  32. VITAMIN D3 [Suspect]
     Active Substance: CHOLECALCIFEROL
     Indication: Insomnia
     Dosage: AMOUNT: 1 DOSAGE FORMS?CAPSULES DOSAGE FORM
     Route: 065
  33. VITAMIN D3 [Suspect]
     Active Substance: CHOLECALCIFEROL
     Indication: Product used for unknown indication
     Dosage: AMOUNT: 1 DOSAGE FORMS?CAPSULES DOSAGE FORM
     Route: 065
  34. VITAMIN D3 [Suspect]
     Active Substance: CHOLECALCIFEROL
     Indication: Insomnia
     Dosage: 1 EVERY 1 DAYS?AMOUNT: 1 DOSAGE FORMS
     Route: 065
  35. VITAMIN D3 [Suspect]
     Active Substance: CHOLECALCIFEROL
     Indication: Product used for unknown indication
     Dosage: 1 EVERY 1 DAYS?AMOUNT: 1 DOSAGE FORMS
     Route: 065
  36. VITAMIN D3 [Suspect]
     Active Substance: CHOLECALCIFEROL
     Indication: Insomnia
     Dosage: 1 EVERY 1 DAYS?AMOUNT: 1 DOSAGE FORMS?TABLETS DOSAGE FORM
     Route: 065
  37. VITAMIN D3 [Suspect]
     Active Substance: CHOLECALCIFEROL
     Indication: Product used for unknown indication
     Dosage: 1 EVERY 1 DAYS?AMOUNT: 1 DOSAGE FORMS?TABLETS DOSAGE FORM
     Route: 065
  38. AMLODIPINE [Suspect]
     Active Substance: AMLODIPINE BESYLATE
     Indication: Rash
     Dosage: 1 EVERY 1 DAYS?AMOUNT: 1 DOSAGE FORMS
     Route: 065
  39. AMLODIPINE [Suspect]
     Active Substance: AMLODIPINE BESYLATE
     Indication: Product used for unknown indication
     Dosage: 1 EVERY 1 DAYS?AMOUNT: 1 DOSAGE FORMS
     Route: 065
  40. AMLODIPINE [Suspect]
     Active Substance: AMLODIPINE BESYLATE
     Indication: Rash
     Dosage: 1 EVERY 1 DAYS?AMOUNT: 1 DOSAGE FORMS?TABLETS DOSAGE FORM
     Route: 065
  41. AMLODIPINE [Suspect]
     Active Substance: AMLODIPINE BESYLATE
     Indication: Product used for unknown indication
     Dosage: 1 EVERY 1 DAYS?AMOUNT: 1 DOSAGE FORMS?TABLETS DOSAGE FORM
     Route: 065
  42. AMLODIPINE [Suspect]
     Active Substance: AMLODIPINE BESYLATE
     Indication: Rash
     Dosage: 1 EVERY 1 DAYS?AMOUNT: 3 DOSAGE FORMS
     Route: 065
  43. AMLODIPINE [Suspect]
     Active Substance: AMLODIPINE BESYLATE
     Indication: Product used for unknown indication
     Dosage: 1 EVERY 1 DAYS?AMOUNT: 3 DOSAGE FORMS
     Route: 065
  44. AMLODIPINE [Suspect]
     Active Substance: AMLODIPINE BESYLATE
     Indication: Rash
     Dosage: NOT SPECIFIED DOSAGE FORM
     Route: 065
  45. AMLODIPINE [Suspect]
     Active Substance: AMLODIPINE BESYLATE
     Indication: Product used for unknown indication
     Dosage: NOT SPECIFIED DOSAGE FORM
     Route: 065
  46. DIVIGEL [Suspect]
     Active Substance: ESTRADIOL
     Indication: Product used for unknown indication
     Route: 065
  47. VALPROIC ACID [Suspect]
     Active Substance: VALPROIC ACID
     Indication: Insomnia
     Dosage: NOT SPECIFIED DOSAGE FORM
     Route: 065
  48. VALPROIC ACID [Suspect]
     Active Substance: VALPROIC ACID
     Indication: Product used for unknown indication
     Dosage: NOT SPECIFIED DOSAGE FORM
     Route: 065
  49. VALPROIC ACID [Suspect]
     Active Substance: VALPROIC ACID
     Indication: Insomnia
     Dosage: TABLETS DOSAGE FORM
     Route: 065
  50. VALPROIC ACID [Suspect]
     Active Substance: VALPROIC ACID
     Indication: Product used for unknown indication
     Dosage: TABLETS DOSAGE FORM
     Route: 065
  51. ACETAMINOPHEN AND CAFFEINE [Suspect]
     Active Substance: ACETAMINOPHEN\CAFFEINE
     Indication: Pain
     Dosage: AMOUNT: 3 DOSAGE FORMS?NOT SPECIFIED DOSAGE FORM
     Route: 065
  52. ACETAMINOPHEN AND CAFFEINE [Suspect]
     Active Substance: ACETAMINOPHEN\CAFFEINE
     Indication: Pyrexia
     Dosage: AMOUNT: 3 DOSAGE FORMS?NOT SPECIFIED DOSAGE FORM
     Route: 065
  53. ACETAMINOPHEN AND CAFFEINE [Suspect]
     Active Substance: ACETAMINOPHEN\CAFFEINE
     Indication: Pain
     Dosage: 2 EVERY 1 DAYS?AMOUNT: 2 DOSAGE FORMS
     Route: 065
  54. ACETAMINOPHEN AND CAFFEINE [Suspect]
     Active Substance: ACETAMINOPHEN\CAFFEINE
     Indication: Pyrexia
     Dosage: 2 EVERY 1 DAYS?AMOUNT: 2 DOSAGE FORMS
     Route: 065
  55. ACETAMINOPHEN AND CAFFEINE [Suspect]
     Active Substance: ACETAMINOPHEN\CAFFEINE
     Indication: Pain
     Route: 065
  56. ACETAMINOPHEN AND CAFFEINE [Suspect]
     Active Substance: ACETAMINOPHEN\CAFFEINE
     Indication: Pyrexia
     Route: 065
  57. ACETAMINOPHEN\PHENYLEPHRINE HYDROCHLORIDE [Suspect]
     Active Substance: ACETAMINOPHEN\PHENYLEPHRINE HYDROCHLORIDE
     Indication: Product used for unknown indication
     Route: 065
  58. ALUMINUM HYDROXIDE [Suspect]
     Active Substance: ALUMINUM HYDROXIDE
     Indication: Abdominal discomfort
     Dosage: AMOUNT: 30 ML
     Route: 048
  59. ALUMINUM HYDROXIDE [Suspect]
     Active Substance: ALUMINUM HYDROXIDE
     Indication: Abdominal discomfort
     Route: 065
  60. AMLODIPINE BESYLATE [Suspect]
     Active Substance: AMLODIPINE BESYLATE
     Indication: Product used for unknown indication
     Dosage: 1 EVERY 1 DAYS?AMOUNT: 1 DOSAGE FORMS
     Route: 065
  61. ARIPIPRAZOLE [Suspect]
     Active Substance: ARIPIPRAZOLE
     Indication: Product used for unknown indication
     Route: 065
  62. ARIPIPRAZOLE [Suspect]
     Active Substance: ARIPIPRAZOLE
     Indication: Product used for unknown indication
     Dosage: NOT SPECIFIED DOSAGE FORM
     Route: 065
  63. CHOLECALCIFEROL [Suspect]
     Active Substance: CHOLECALCIFEROL
     Indication: Product used for unknown indication
     Dosage: AMOUNT: 1 DOSAGE FORMS
     Route: 065
  64. CHOLECALCIFEROL [Suspect]
     Active Substance: CHOLECALCIFEROL
     Indication: Product used for unknown indication
     Dosage: NOT SPECIFIED DOSAGE FORM
     Route: 065
  65. CLOTRIMAZOLE [Suspect]
     Active Substance: CLOTRIMAZOLE
     Indication: Rash
     Dosage: 1 EVERY 1 DAYS?AMOUNT: 2 DOSAGE FORMS?NOT SPECIFIED DOSAGE FORM
     Route: 065
  66. CLOTRIMAZOLE [Suspect]
     Active Substance: CLOTRIMAZOLE
     Indication: Rash
     Route: 065
  67. CLOZAPINE [Suspect]
     Active Substance: CLOZAPINE
     Indication: Product used for unknown indication
     Dosage: 1 EVERY 1 DAYS?AMOUNT: 1 DOSAGE FORMS
     Route: 065
  68. CLOZAPINE [Suspect]
     Active Substance: CLOZAPINE
     Indication: Product used for unknown indication
     Dosage: 1 EVERY 1 DAYS?AMOUNT: 1 DOSAGE FORMS?TABLETS DOSAGE FORM
     Route: 065
  69. CLOZAPINE [Suspect]
     Active Substance: CLOZAPINE
     Indication: Product used for unknown indication
     Dosage: 1 EVERY 1 DAYS?AMOUNT: 3 DOSAGE FORMS
     Route: 065
  70. CLOZAPINE [Suspect]
     Active Substance: CLOZAPINE
     Indication: Product used for unknown indication
     Route: 065
  71. CONJUGATED ESTROGENS [Suspect]
     Active Substance: ESTROGENS, CONJUGATED
     Indication: Product used for unknown indication
     Route: 065
  72. CONJUGATED ESTROGENS [Suspect]
     Active Substance: ESTROGENS, CONJUGATED
     Indication: Product used for unknown indication
     Route: 065
  73. CONJUGATED ESTROGENS [Suspect]
     Active Substance: ESTROGENS, CONJUGATED
     Indication: Product used for unknown indication
     Dosage: NOT SPECIFIED DOSAGE FORM
     Route: 061
  74. ESTRADIOL [Suspect]
     Active Substance: ESTRADIOL
     Indication: Product used for unknown indication
     Dosage: AMOUNT: 1 DOSAGE FORMS
     Route: 067
  75. ESTRADIOL [Suspect]
     Active Substance: ESTRADIOL
     Indication: Product used for unknown indication
     Dosage: AMOUNT: 1 DOSAGE FORMS?NOT SPECIFIED DOSAGE FORM
     Route: 067
  76. LEVOTHYROXINE SODIUM [Suspect]
     Active Substance: LEVOTHYROXINE SODIUM
     Indication: Product used for unknown indication
     Dosage: AMOUNT: 1 DOSAGE FORMS?NOT SPECIFIED DOSAGE FORM
     Route: 065
  77. OLANZAPINE [Suspect]
     Active Substance: OLANZAPINE
     Indication: Mood altered
     Dosage: 1 EVERY 1 DAYS?AMOUNT: 1 DOSAGE FORMS
     Route: 065
  78. OLANZAPINE [Suspect]
     Active Substance: OLANZAPINE
     Indication: Mood altered
     Dosage: 1 EVERY 1 DAYS?AMOUNT: 2 DOSAGE FORMS?NOT SPECIFIED DOSAGE FORM
     Route: 065
  79. OLANZAPINE [Suspect]
     Active Substance: OLANZAPINE
     Indication: Mood altered
     Route: 065
  80. PREMARIN WITH METHYLTESTOSTERONE [Suspect]
     Active Substance: ESTROGENS, CONJUGATED\METHYLTESTOSTERONE
     Indication: Product used for unknown indication
     Dosage: AMOUNT: 1 DOSAGE FORMS
     Route: 065
  81. PREMARIN WITH METHYLTESTOSTERONE [Suspect]
     Active Substance: ESTROGENS, CONJUGATED\METHYLTESTOSTERONE
     Indication: Product used for unknown indication
     Dosage: AMOUNT: 1 DOSAGE FORMS?CAPSULES DOSAGE FORM
     Route: 065
  82. PREMARIN WITH METHYLTESTOSTERONE [Suspect]
     Active Substance: ESTROGENS, CONJUGATED\METHYLTESTOSTERONE
     Indication: Product used for unknown indication
     Dosage: AMOUNT: 5 GRAM?NOT SPECIFIED DOSAGE FORM
     Route: 065
  83. PREMARIN WITH METHYLTESTOSTERONE [Suspect]
     Active Substance: ESTROGENS, CONJUGATED\METHYLTESTOSTERONE
     Indication: Product used for unknown indication
     Dosage: 1 EVERY 1 DAYS?AMOUNT: 2 DOSAGE FORMS
     Route: 065
  84. PREMARIN WITH METHYLTESTOSTERONE [Suspect]
     Active Substance: ESTROGENS, CONJUGATED\METHYLTESTOSTERONE
     Indication: Product used for unknown indication
     Dosage: 1 EVERY 1 DAYS?AMOUNT: 2 DOSAGE FORMS?NOT SPECIFIED DOSAGE FORM
     Route: 065
  85. PREMARIN WITH METHYLTESTOSTERONE [Suspect]
     Active Substance: ESTROGENS, CONJUGATED\METHYLTESTOSTERONE
     Indication: Product used for unknown indication
     Dosage: 2 EVERY 1 DAYS?AMOUNT: 1 DOSAGE FORMS
     Route: 065
  86. PREMARIN WITH METHYLTESTOSTERONE [Suspect]
     Active Substance: ESTROGENS, CONJUGATED\METHYLTESTOSTERONE
     Indication: Product used for unknown indication
     Dosage: 2 EVERY 1 DAYS?AMOUNT: 1 DOSAGE FORMS
     Route: 065
  87. PREMARIN WITH METHYLTESTOSTERONE [Suspect]
     Active Substance: ESTROGENS, CONJUGATED\METHYLTESTOSTERONE
     Indication: Product used for unknown indication
     Dosage: 2 EVERY 1 DAYS?AMOUNT: 150 MILLIGRAM
     Route: 065
  88. PREMARIN WITH METHYLTESTOSTERONE [Suspect]
     Active Substance: ESTROGENS, CONJUGATED\METHYLTESTOSTERONE
     Indication: Product used for unknown indication
     Route: 065
  89. PREMARIN WITH METHYLTESTOSTERONE [Suspect]
     Active Substance: ESTROGENS, CONJUGATED\METHYLTESTOSTERONE
     Indication: Product used for unknown indication
     Dosage: NOT SPECIFIED DOSAGE FORM
     Route: 065
  90. PREMARIN WITH METHYLTESTOSTERONE [Suspect]
     Active Substance: ESTROGENS, CONJUGATED\METHYLTESTOSTERONE
     Indication: Product used for unknown indication
     Dosage: TABLETS DOSAGE FORM
     Route: 065
  91. ZOPICLONE [Suspect]
     Active Substance: ZOPICLONE
     Indication: Insomnia
     Dosage: 1 EVERY 1 DAYS?AMOUNT: 1 DOSAGE FORMS?TABLETS DOSAGE FORM
     Route: 065
  92. ZOPICLONE [Suspect]
     Active Substance: ZOPICLONE
     Indication: Insomnia
     Route: 065
  93. AMLODIPINE BESYLATE [Suspect]
     Active Substance: AMLODIPINE BESYLATE
     Indication: Product used for unknown indication
     Dosage: 1 EVERY 1 DAYS?AMOUNT: 1 DOSAGE FORMS
     Route: 065
  94. AMLODIPINE MESYLATE [Suspect]
     Active Substance: AMLODIPINE MESYLATE
     Indication: Product used for unknown indication
     Route: 065
  95. ESTRADIOL BENZOATE [Suspect]
     Active Substance: ESTRADIOL BENZOATE
     Indication: Product used for unknown indication
     Dosage: 1.0 DOSAGE FORMS
     Route: 067
  96. INFLUENZA VIRUS VACCINE [Suspect]
     Active Substance: INFLUENZA VIRUS VACCINE
     Indication: Prophylaxis
     Dosage: AMOUNT: 0.2 ML
     Route: 065
  97. INFLUENZA VIRUS VACCINE [Suspect]
     Active Substance: INFLUENZA VIRUS VACCINE
     Indication: Prophylaxis
     Route: 065
  98. INFLUENZA VIRUS VACCINE [Suspect]
     Active Substance: INFLUENZA VIRUS VACCINE
     Indication: Mood altered
     Dosage: AMOUNT: 0.2 ML?NOT SPECIFIED DOSAGE FORM
     Route: 065
  99. INFLUENZA VIRUS VACCINE [Suspect]
     Active Substance: INFLUENZA VIRUS VACCINE
     Indication: Prophylaxis
     Dosage: AMOUNT: 0.2 ML?NOT SPECIFIED DOSAGE FORM
     Route: 065
  100. INFLUENZA VIRUS VACCINE [Suspect]
     Active Substance: INFLUENZA VIRUS VACCINE
     Indication: Product used for unknown indication
     Dosage: AMOUNT: 0.2 ML?NOT SPECIFIED DOSAGE FORM
     Route: 065
  101. INFLUENZA VIRUS VACCINE [Suspect]
     Active Substance: INFLUENZA VIRUS VACCINE
     Indication: Mood altered
     Dosage: AMOUNT: 1 DOSAGE FORMS?NOT SPECIFIED DOSAGE FORM
     Route: 065
  102. INFLUENZA VIRUS VACCINE [Suspect]
     Active Substance: INFLUENZA VIRUS VACCINE
     Indication: Prophylaxis
     Dosage: AMOUNT: 1 DOSAGE FORMS?NOT SPECIFIED DOSAGE FORM
     Route: 065
  103. INFLUENZA VIRUS VACCINE [Suspect]
     Active Substance: INFLUENZA VIRUS VACCINE
     Indication: Product used for unknown indication
     Dosage: AMOUNT: 1 DOSAGE FORMS?NOT SPECIFIED DOSAGE FORM
     Route: 065
  104. INFLUENZA VIRUS VACCINE [Suspect]
     Active Substance: INFLUENZA VIRUS VACCINE
     Indication: Mood altered
     Dosage: 1 EVERY 1 DAYS?AMOUNT: 1 DOSAGE FORMS?NOT SPECIFIED DOSAGE FORM
     Route: 065
  105. INFLUENZA VIRUS VACCINE [Suspect]
     Active Substance: INFLUENZA VIRUS VACCINE
     Indication: Prophylaxis
     Dosage: 1 EVERY 1 DAYS?AMOUNT: 1 DOSAGE FORMS?NOT SPECIFIED DOSAGE FORM
     Route: 065
  106. INFLUENZA VIRUS VACCINE [Suspect]
     Active Substance: INFLUENZA VIRUS VACCINE
     Indication: Product used for unknown indication
     Dosage: 1 EVERY 1 DAYS?AMOUNT: 1 DOSAGE FORMS?NOT SPECIFIED DOSAGE FORM
     Route: 065
  107. INFLUENZA VIRUS VACCINE [Suspect]
     Active Substance: INFLUENZA VIRUS VACCINE
     Indication: Mood altered
     Dosage: 1 EVERY 1 DAYS?AMOUNT: 2 DOSAGE FORMS?NOT SPECIFIED DOSAGE FORM
     Route: 065
  108. INFLUENZA VIRUS VACCINE [Suspect]
     Active Substance: INFLUENZA VIRUS VACCINE
     Indication: Prophylaxis
     Dosage: 1 EVERY 1 DAYS?AMOUNT: 2 DOSAGE FORMS?NOT SPECIFIED DOSAGE FORM
     Route: 065
  109. INFLUENZA VIRUS VACCINE [Suspect]
     Active Substance: INFLUENZA VIRUS VACCINE
     Indication: Product used for unknown indication
     Dosage: 1 EVERY 1 DAYS?AMOUNT: 2 DOSAGE FORMS?NOT SPECIFIED DOSAGE FORM
     Route: 065
  110. INFLUENZA VIRUS VACCINE [Suspect]
     Active Substance: INFLUENZA VIRUS VACCINE
     Indication: Mood altered
     Dosage: 2 EVERY 1 DAYS?AMOUNT: 1 DOSAGE FORMS?NOT SPECIFIED DOSAGE FORM
     Route: 065
  111. INFLUENZA VIRUS VACCINE [Suspect]
     Active Substance: INFLUENZA VIRUS VACCINE
     Indication: Prophylaxis
     Dosage: 2 EVERY 1 DAYS?AMOUNT: 1 DOSAGE FORMS?NOT SPECIFIED DOSAGE FORM
     Route: 065
  112. INFLUENZA VIRUS VACCINE [Suspect]
     Active Substance: INFLUENZA VIRUS VACCINE
     Indication: Product used for unknown indication
     Dosage: 2 EVERY 1 DAYS?AMOUNT: 1 DOSAGE FORMS?NOT SPECIFIED DOSAGE FORM
     Route: 065
  113. INFLUENZA VIRUS VACCINE [Suspect]
     Active Substance: INFLUENZA VIRUS VACCINE
     Indication: Mood altered
     Dosage: NOT SPECIFIED DOSAGE FORM
     Route: 065
  114. INFLUENZA VIRUS VACCINE [Suspect]
     Active Substance: INFLUENZA VIRUS VACCINE
     Indication: Prophylaxis
     Dosage: NOT SPECIFIED DOSAGE FORM
     Route: 065
  115. INFLUENZA VIRUS VACCINE [Suspect]
     Active Substance: INFLUENZA VIRUS VACCINE
     Indication: Product used for unknown indication
     Dosage: NOT SPECIFIED DOSAGE FORM
     Route: 065
  116. PENTOXYVERINE [Suspect]
     Active Substance: PENTOXYVERINE
     Indication: Product used for unknown indication
     Route: 065
  117. PHENYLEPHRINE [Suspect]
     Active Substance: PHENYLEPHRINE HYDROCHLORIDE
     Indication: Abdominal discomfort
     Dosage: AMOUNT: 0.5 GRAM
     Route: 061
  118. PHENYLEPHRINE [Suspect]
     Active Substance: PHENYLEPHRINE HYDROCHLORIDE
     Indication: Product used for unknown indication
     Dosage: AMOUNT: 0.5 GRAM
     Route: 061
  119. PHENYLEPHRINE [Suspect]
     Active Substance: PHENYLEPHRINE HYDROCHLORIDE
     Indication: Abdominal discomfort
     Dosage: AMOUNT: 5 GRAM
     Route: 065
  120. PHENYLEPHRINE [Suspect]
     Active Substance: PHENYLEPHRINE HYDROCHLORIDE
     Indication: Product used for unknown indication
     Dosage: AMOUNT: 5 GRAM
     Route: 065
  121. PHENYLEPHRINE [Suspect]
     Active Substance: PHENYLEPHRINE HYDROCHLORIDE
     Indication: Abdominal discomfort
     Dosage: 1 EVERY 1 DAYS?AMOUNT: 2 DOSAGE FORMS
     Route: 065
  122. PHENYLEPHRINE [Suspect]
     Active Substance: PHENYLEPHRINE HYDROCHLORIDE
     Indication: Product used for unknown indication
     Dosage: 1 EVERY 1 DAYS?AMOUNT: 2 DOSAGE FORMS
     Route: 065
  123. PHENYLEPHRINE [Suspect]
     Active Substance: PHENYLEPHRINE HYDROCHLORIDE
     Indication: Abdominal discomfort
     Dosage: 1 EVERY 1 DAYS?AMOUNT: 2 DOSAGE FORMS
     Route: 065
  124. PHENYLEPHRINE [Suspect]
     Active Substance: PHENYLEPHRINE HYDROCHLORIDE
     Indication: Product used for unknown indication
     Dosage: 1 EVERY 1 DAYS?AMOUNT: 2 DOSAGE FORMS
     Route: 065
  125. PHENYLEPHRINE [Suspect]
     Active Substance: PHENYLEPHRINE HYDROCHLORIDE
     Indication: Abdominal discomfort
     Dosage: 2 EVERY 1 DAYS?AMOUNT: 1 DOSAGE FORMS
     Route: 065
  126. PHENYLEPHRINE [Suspect]
     Active Substance: PHENYLEPHRINE HYDROCHLORIDE
     Indication: Product used for unknown indication
     Dosage: 2 EVERY 1 DAYS?AMOUNT: 1 DOSAGE FORMS
     Route: 065
  127. PHENYLEPHRINE [Suspect]
     Active Substance: PHENYLEPHRINE HYDROCHLORIDE
     Indication: Abdominal discomfort
     Dosage: 2 EVERY 1 DAYS?AMOUNT: 150 MILLIGRAM
     Route: 065
  128. PHENYLEPHRINE [Suspect]
     Active Substance: PHENYLEPHRINE HYDROCHLORIDE
     Indication: Product used for unknown indication
     Dosage: 2 EVERY 1 DAYS?AMOUNT: 150 MILLIGRAM
     Route: 065
  129. PHENYLEPHRINE [Suspect]
     Active Substance: PHENYLEPHRINE HYDROCHLORIDE
     Indication: Abdominal discomfort
     Dosage: 2 EVERY 1 DAYS?AMOUNT: 150 MILLIGRAM
     Route: 065
  130. PHENYLEPHRINE [Suspect]
     Active Substance: PHENYLEPHRINE HYDROCHLORIDE
     Indication: Product used for unknown indication
     Dosage: 2 EVERY 1 DAYS?AMOUNT: 150 MILLIGRAM
     Route: 065
  131. PHENYLEPHRINE [Suspect]
     Active Substance: PHENYLEPHRINE HYDROCHLORIDE
     Indication: Abdominal discomfort
     Route: 065
  132. PHENYLEPHRINE [Suspect]
     Active Substance: PHENYLEPHRINE HYDROCHLORIDE
     Indication: Product used for unknown indication
     Route: 065
  133. PHENYLEPHRINE [Suspect]
     Active Substance: PHENYLEPHRINE HYDROCHLORIDE
     Indication: Abdominal discomfort
     Route: 061
  134. PHENYLEPHRINE [Suspect]
     Active Substance: PHENYLEPHRINE HYDROCHLORIDE
     Indication: Product used for unknown indication
     Route: 061
  135. PHENYLEPHRINE [Suspect]
     Active Substance: PHENYLEPHRINE HYDROCHLORIDE
     Indication: Abdominal discomfort
     Route: 065
  136. PHENYLEPHRINE [Suspect]
     Active Substance: PHENYLEPHRINE HYDROCHLORIDE
     Indication: Product used for unknown indication
     Route: 065
  137. PHENYLEPHRINE [Suspect]
     Active Substance: PHENYLEPHRINE HYDROCHLORIDE
     Indication: Abdominal discomfort
     Dosage: TABLETS DOSAGE FORM
     Route: 065
  138. PHENYLEPHRINE [Suspect]
     Active Substance: PHENYLEPHRINE HYDROCHLORIDE
     Indication: Product used for unknown indication
     Dosage: TABLETS DOSAGE FORM
     Route: 065
  139. VALPROATE SODIUM [Suspect]
     Active Substance: VALPROATE SODIUM
     Indication: Insomnia
     Dosage: AMOUNT: 1 DOSAGE FORMS
     Route: 065
  140. VALPROATE SODIUM [Suspect]
     Active Substance: VALPROATE SODIUM
     Indication: Product used for unknown indication
     Dosage: AMOUNT: 1 DOSAGE FORMS
     Route: 065
  141. VALPROATE SODIUM [Suspect]
     Active Substance: VALPROATE SODIUM
     Indication: Insomnia
     Dosage: AMOUNT: 1 DOSAGE FORMS?CAPSULES DOSAGE FORM
     Route: 065
  142. VALPROATE SODIUM [Suspect]
     Active Substance: VALPROATE SODIUM
     Indication: Product used for unknown indication
     Dosage: AMOUNT: 1 DOSAGE FORMS?CAPSULES DOSAGE FORM
     Route: 065
  143. VALPROATE SODIUM [Suspect]
     Active Substance: VALPROATE SODIUM
     Indication: Insomnia
     Dosage: AMOUNT: 1 DOSAGE FORMS?NOT SPECIFIED DOSAGE FORM
     Route: 065
  144. VALPROATE SODIUM [Suspect]
     Active Substance: VALPROATE SODIUM
     Indication: Product used for unknown indication
     Dosage: AMOUNT: 1 DOSAGE FORMS?NOT SPECIFIED DOSAGE FORM
     Route: 065
  145. VALPROATE SODIUM [Suspect]
     Active Substance: VALPROATE SODIUM
     Indication: Insomnia
     Dosage: 1 EVERY 1 DAYS?AMOUNT: 1 DOSAGE FORMS
     Route: 048
  146. VALPROATE SODIUM [Suspect]
     Active Substance: VALPROATE SODIUM
     Indication: Product used for unknown indication
     Dosage: 1 EVERY 1 DAYS?AMOUNT: 1 DOSAGE FORMS
     Route: 048
  147. VALPROATE SODIUM [Suspect]
     Active Substance: VALPROATE SODIUM
     Indication: Insomnia
     Dosage: 1 EVERY 1 DAYS?AMOUNT: 2 DOSAGE FORMS
     Route: 065
  148. VALPROATE SODIUM [Suspect]
     Active Substance: VALPROATE SODIUM
     Indication: Product used for unknown indication
     Dosage: 1 EVERY 1 DAYS?AMOUNT: 2 DOSAGE FORMS
     Route: 065
  149. VALPROATE SODIUM [Suspect]
     Active Substance: VALPROATE SODIUM
     Indication: Insomnia
     Dosage: 1 EVERY 1 DAYS?AMOUNT: 2 DOSAGE FORMS?NOT SPECIFIED DOSAGE FORM
     Route: 065
  150. VALPROATE SODIUM [Suspect]
     Active Substance: VALPROATE SODIUM
     Indication: Product used for unknown indication
     Dosage: 1 EVERY 1 DAYS?AMOUNT: 2 DOSAGE FORMS?NOT SPECIFIED DOSAGE FORM
     Route: 065
  151. VALPROATE SODIUM [Suspect]
     Active Substance: VALPROATE SODIUM
     Indication: Insomnia
     Dosage: 2 EVERY 1 DAYS?AMOUNT: 1 DOSAGE FORMS?NOT SPECIFIED DOSAGE FORM
     Route: 065
  152. VALPROATE SODIUM [Suspect]
     Active Substance: VALPROATE SODIUM
     Indication: Product used for unknown indication
     Dosage: 2 EVERY 1 DAYS?AMOUNT: 1 DOSAGE FORMS?NOT SPECIFIED DOSAGE FORM
     Route: 065
  153. VALPROATE SODIUM [Suspect]
     Active Substance: VALPROATE SODIUM
     Indication: Insomnia
     Route: 065
  154. VALPROATE SODIUM [Suspect]
     Active Substance: VALPROATE SODIUM
     Indication: Product used for unknown indication
     Route: 065
  155. VALPROATE SODIUM [Suspect]
     Active Substance: VALPROATE SODIUM
     Indication: Insomnia
     Route: 065
  156. VALPROATE SODIUM [Suspect]
     Active Substance: VALPROATE SODIUM
     Indication: Product used for unknown indication
     Route: 065
  157. VALPROATE SODIUM [Suspect]
     Active Substance: VALPROATE SODIUM
     Indication: Insomnia
     Dosage: CAPSULES DOSAGE FORM
     Route: 065
  158. VALPROATE SODIUM [Suspect]
     Active Substance: VALPROATE SODIUM
     Indication: Product used for unknown indication
     Dosage: CAPSULES DOSAGE FORM
     Route: 065
  159. VALPROATE SODIUM [Suspect]
     Active Substance: VALPROATE SODIUM
     Indication: Insomnia
     Dosage: NOT SPECIFIED DOSAGE FORM
     Route: 065
  160. VALPROATE SODIUM [Suspect]
     Active Substance: VALPROATE SODIUM
     Indication: Product used for unknown indication
     Dosage: NOT SPECIFIED DOSAGE FORM
     Route: 065

REACTIONS (5)
  - Drug interaction [Unknown]
  - Drug level increased [Unknown]
  - Electrocardiogram QT prolonged [Unknown]
  - Product use issue [Unknown]
  - Schizoaffective disorder [Unknown]
